FAERS Safety Report 10784360 (Version 2)
Quarter: 2015Q1

REPORT INFORMATION
  Report Type: Spontaneous
  Country: CA (occurrence: CA)
  Receive Date: 20150211
  Receipt Date: 20150324
  Transmission Date: 20150721
  Serious: Yes (Other)
  Sender: FDA-Public Use
  Company Number: CA-ROCHE-1536251

PATIENT
  Age: 15 Year
  Sex: Female

DRUGS (2)
  1. RITUXAN [Suspect]
     Active Substance: RITUXIMAB
     Dosage: 2 DOSES
     Route: 042
     Dates: start: 201407
  2. RITUXAN [Suspect]
     Active Substance: RITUXIMAB
     Indication: GRANULOMATOSIS WITH POLYANGIITIS
     Dosage: 8 DOSES
     Route: 042
     Dates: start: 201206

REACTIONS (2)
  - Febrile neutropenia [Unknown]
  - Off label use [Unknown]
